FAERS Safety Report 5353371-6 (Version None)
Quarter: 2007Q2

REPORT INFORMATION
  Report Type: 
  Country: None (occurrence: None)
  Receive Date: 20070518
  Receipt Date: 20070402
  Transmission Date: 20071010
  Serious: No
  Sender: FDA-Public Use
  Company Number: TPA2007A00726

PATIENT
  Age: 37 Year
  Sex: Female
  Weight: 55.3388 kg

DRUGS (3)
  1. ROZEREM [Suspect]
     Indication: INSOMNIA
     Dosage: 8 MG, QHS, PER ORAL
     Route: 048
     Dates: start: 20070324
  2. METROGEL [Concomitant]
  3. KARIVA (ETHINYLESTRADIOL, DESOGESTREL) [Concomitant]

REACTIONS (4)
  - CONDITION AGGRAVATED [None]
  - MIDDLE INSOMNIA [None]
  - POOR QUALITY SLEEP [None]
  - UNEVALUABLE EVENT [None]
